FAERS Safety Report 23316738 (Version 1)
Quarter: 2023Q4

REPORT INFORMATION
  Report Type: Spontaneous
  Country: US (occurrence: None)
  Receive Date: 20231219
  Receipt Date: 20231219
  Transmission Date: 20240109
  Serious: No
  Sender: FDA-Public Use
  Company Number: US-ROCHE-3394600

PATIENT
  Age: 29 Year
  Sex: Female

DRUGS (2)
  1. HEMLIBRA [Suspect]
     Active Substance: EMICIZUMAB-KXWH
     Indication: Product used for unknown indication
     Route: 065
     Dates: start: 20230718
  2. ANTIHEMOPHILIC FACTOR HUMAN [Suspect]
     Active Substance: ANTIHEMOPHILIC FACTOR HUMAN
     Indication: Product used for unknown indication
     Dosage: 2-3 TIMES A WEEK
     Route: 065

REACTIONS (3)
  - Headache [Unknown]
  - Arthralgia [Unknown]
  - Haemorrhage [Unknown]

NARRATIVE: CASE EVENT DATE: 20230718
